FAERS Safety Report 9998140 (Version 1)
Quarter: 2014Q1

REPORT INFORMATION
  Report Type: Report from Study
  Country: US (occurrence: US)
  Receive Date: 20140311
  Receipt Date: 20140311
  Transmission Date: 20141002
  Serious: Yes (Hospitalization)
  Sender: FDA-Public Use
  Company Number: US-ABBVIE-14P-163-1209014-00

PATIENT
  Age: 73 Year
  Sex: Female
  Weight: 72.64 kg

DRUGS (11)
  1. HUMIRA [Suspect]
     Indication: RHEUMATOID ARTHRITIS
     Dates: start: 2013, end: 201401
  2. OYSTER SHELL CALCIUM [Concomitant]
     Indication: MINERAL SUPPLEMENTATION
  3. METFORMIN [Concomitant]
     Indication: DIABETES MELLITUS
  4. NABUMETONE [Concomitant]
     Indication: RHEUMATOID ARTHRITIS
  5. FOLIC ACID [Concomitant]
     Indication: VITAMIN SUPPLEMENTATION
  6. METHOTREXATE [Concomitant]
     Indication: RHEUMATOID ARTHRITIS
  7. GLIPIZIDE [Concomitant]
     Indication: DIABETES MELLITUS
  8. HYDROXYCHLOROQUINE [Concomitant]
     Indication: RHEUMATOID ARTHRITIS
  9. ANAPRIL [Concomitant]
     Indication: HYPERTENSION
  10. PRAVASTATIN [Concomitant]
     Indication: BLOOD CHOLESTEROL
  11. AMLODIPINE [Concomitant]
     Indication: HYPERTENSION

REACTIONS (7)
  - Arthralgia [Recovering/Resolving]
  - Neck pain [Recovering/Resolving]
  - Pain [Recovering/Resolving]
  - Blood glucose increased [Recovered/Resolved]
  - Cerebrovascular accident [Recovered/Resolved]
  - Pain in extremity [Recovering/Resolving]
  - Rheumatoid arthritis [Recovering/Resolving]
